FAERS Safety Report 5693344-7 (Version None)
Quarter: 2008Q2

REPORT INFORMATION
  Report Type: 
  Country: None (occurrence: None)
  Receive Date: 20080403
  Receipt Date: 20071130
  Transmission Date: 20081010
  Serious: No
  Sender: FDA-Public Use
  Company Number: US-BAYER-200716059NA

PATIENT
  Age: 44 Year
  Sex: Female

DRUGS (4)
  1. MIRENA [Suspect]
     Indication: MENORRHAGIA
     Route: 015
     Dates: start: 20071115
  2. EFFEXOR [Concomitant]
     Indication: DEPRESSION
  3. LUVOX [Concomitant]
     Indication: OBSESSIVE-COMPULSIVE DISORDER
  4. AMBIEN [Concomitant]
     Indication: INSOMNIA

REACTIONS (2)
  - ABDOMINAL PAIN LOWER [None]
  - PROCEDURAL PAIN [None]
